FAERS Safety Report 17878131 (Version 1)
Quarter: 2020Q2

REPORT INFORMATION
  Report Type: Report from Study
  Country: None (occurrence: US)
  Receive Date: 20200610
  Receipt Date: 20200610
  Transmission Date: 20200714
  Serious: Yes (Hospitalization, Other)
  Sender: FDA-Public Use
  Company Number: US-ABBVIE-20K-163-3435259-00

PATIENT
  Sex: Female

DRUGS (1)
  1. HUMIRA [Suspect]
     Active Substance: ADALIMUMAB
     Indication: COLITIS ULCERATIVE
     Dosage: CITRATE FREE
     Route: 058
     Dates: start: 20200211, end: 2020

REACTIONS (4)
  - Coccidioidomycosis [Unknown]
  - Pneumonia [Unknown]
  - Dizziness [Unknown]
  - Poor quality sleep [Unknown]

NARRATIVE: CASE EVENT DATE: 2020
